FAERS Safety Report 14680279 (Version 2)
Quarter: 2018Q2

REPORT INFORMATION
  Report Type: Spontaneous
  Country: CA (occurrence: CA)
  Receive Date: 20180326
  Receipt Date: 20180504
  Transmission Date: 20180711
  Serious: Yes (Other)
  Sender: FDA-Public Use
  Company Number: CA-CELLTRION INC.-2017CA009445

PATIENT

DRUGS (8)
  1. INFLIXIMAB PFIZER (UNKNOWN) [Suspect]
     Active Substance: INFLIXIMAB
     Indication: ANKYLOSING SPONDYLITIS
     Dosage: 300 MG, CYCLIC (EVERY 0, 2, 6 WEEKS, THEN EVERY 8 WEEKS)
     Route: 042
     Dates: start: 20170703, end: 20171107
  2. INFLIXIMAB PFIZER (UNKNOWN) [Suspect]
     Active Substance: INFLIXIMAB
     Dosage: 5 MG/KG, EVERY 6 WEEKS
     Route: 042
     Dates: start: 20171107, end: 20171219
  3. INFLIXIMAB PFIZER (UNKNOWN) [Suspect]
     Active Substance: INFLIXIMAB
     Dosage: 490 MG, EVERY 6 WEEKS
     Route: 042
     Dates: start: 20180313, end: 20180313
  4. INFLIXIMAB PFIZER (UNKNOWN) [Suspect]
     Active Substance: INFLIXIMAB
     Dosage: 490 MG, CYCLIC (EVERY 6 WEEKS)
     Route: 042
     Dates: start: 20171107, end: 20171107
  5. STATEX                             /00036302/ [Concomitant]
     Active Substance: MORPHINE SULFATE
     Indication: PAIN
     Dosage: UNK, PRN
     Route: 065
  6. CELEBREX [Concomitant]
     Active Substance: CELECOXIB
     Indication: PRODUCT USED FOR UNKNOWN INDICATION
     Dosage: 200 MG, 2X/DAY
     Route: 065
  7. INFLIXIMAB PFIZER (UNKNOWN) [Suspect]
     Active Substance: INFLIXIMAB
     Dosage: 485 MG, UNK
     Route: 042
     Dates: start: 20171219
  8. INFLIXIMAB PFIZER (UNKNOWN) [Suspect]
     Active Substance: INFLIXIMAB
     Dosage: 490 MG, EVERY 6 WEEKS
     Route: 042
     Dates: start: 20180130

REACTIONS (14)
  - Incorrect dose administered [Unknown]
  - Hot flush [Recovering/Resolving]
  - Endometrial disorder [Unknown]
  - Muscular weakness [Recovered/Resolved]
  - Rash [Unknown]
  - Musculoskeletal stiffness [Recovering/Resolving]
  - Fibromyalgia [Recovered/Resolved]
  - Pain [Recovering/Resolving]
  - Drug effect incomplete [Unknown]
  - Swelling [Recovering/Resolving]
  - Headache [Recovered/Resolved]
  - Weight decreased [Unknown]
  - Infusion site pain [Recovered/Resolved]
  - Fatigue [Unknown]

NARRATIVE: CASE EVENT DATE: 20170703
